FAERS Safety Report 6533325-4 (Version None)
Quarter: 2010Q1

REPORT INFORMATION
  Report Type: 
  Country: None (occurrence: None)
  Receive Date: 20100111
  Receipt Date: 20100107
  Transmission Date: 20100710
  Serious: Yes (Hospitalization)
  Sender: FDA-Public Use
  Company Number: A0838307A

PATIENT
  Age: 80 Year
  Sex: Female

DRUGS (5)
  1. ADVAIR DISKUS 100/50 [Suspect]
     Indication: EMPHYSEMA
     Dosage: 1PUFF TWICE PER DAY
     Route: 055
     Dates: start: 20070101
  2. COMBIVENT [Concomitant]
  3. XOPENEX NEB [Concomitant]
  4. VENTOLIN [Concomitant]
  5. BONIVA [Concomitant]

REACTIONS (2)
  - PRODUCT QUALITY ISSUE [None]
  - THROMBOSIS [None]
